FAERS Safety Report 4899273-0 (Version None)
Quarter: 2006Q1

REPORT INFORMATION
  Report Type: 
  Country: None (occurrence: None)
  Receive Date: 20060131
  Receipt Date: 20060118
  Transmission Date: 20060701
  Serious: Yes (Other)
  Sender: FDA-Public Use
  Company Number: HQWYE173004JAN06

PATIENT
  Age: 75 Year
  Sex: Male

DRUGS (8)
  1. CORDARONE [Suspect]
     Dosage: SEE IMAGE
     Route: 048
     Dates: start: 20051001, end: 20050101
  2. CORDARONE [Suspect]
     Dosage: SEE IMAGE
     Route: 048
     Dates: start: 20020101, end: 20051001
  3. CORDARONE [Suspect]
     Dosage: SEE IMAGE
     Route: 048
     Dates: start: 20051001, end: 20051220
  4. COVERSYL (PERINDOPRIL) [Concomitant]
  5. METOPROLOL SUCCINATE [Concomitant]
  6. ZOCOR [Concomitant]
  7. WARFARIN SODIUM [Concomitant]
  8. HJERTEMAGNYL (ACETYLSALICYLIC ACID/MAGNESIUM OXIDE HEAVY) [Concomitant]

REACTIONS (4)
  - DRY MOUTH [None]
  - DYSPHONIA [None]
  - HEADACHE [None]
  - HYPERTHYROIDISM [None]
